FAERS Safety Report 8765570 (Version 3)
Quarter: 2012Q4

REPORT INFORMATION
  Report Type: 
  Country: CA (occurrence: CA)
  Receive Date: 20120903
  Receipt Date: 20120907
  Transmission Date: 20130627
  Serious: Yes (Other)
  Sender: FDA-Public Use
  Company Number: PHHY2011CA88475

PATIENT
  Sex: Female

DRUGS (5)
  1. SANDOSTATIN LAR [Suspect]
     Indication: CARCINOID TUMOUR
     Dosage: 60 mg, every 4 weeks
     Route: 030
     Dates: start: 20080221
  2. SANDOSTATIN LAR [Suspect]
     Dosage: 60 mg QMO
     Route: 030
  3. SANDOSTATIN LAR [Suspect]
     Dosage: 60 mg QMO
     Route: 030
  4. SANDOSTATIN LAR [Suspect]
     Dosage: 60 mg QMO
     Route: 030
  5. SANDOSTATIN LAR [Suspect]
     Dosage: 60 mg, every 4 weeks
     Route: 030

REACTIONS (6)
  - Osteoporosis [Unknown]
  - Stress fracture [Unknown]
  - Joint swelling [Unknown]
  - Pain in extremity [Unknown]
  - Injection site pain [Unknown]
  - Product quality issue [Unknown]
